FAERS Safety Report 10173678 (Version 1)
Quarter: 2014Q2

REPORT INFORMATION
  Report Type: Spontaneous
  Country: FR (occurrence: FR)
  Receive Date: 20140515
  Receipt Date: 20140515
  Transmission Date: 20141212
  Serious: Yes (Other)
  Sender: FDA-Public Use
  Company Number: FR-PFIZER INC-2014130575

PATIENT
  Age: 56 Year
  Sex: Female

DRUGS (2)
  1. EFFEXOR LP [Suspect]
     Dosage: 75 MG, 4X/DAY
  2. EFFEXOR LP [Suspect]
     Dosage: UNK

REACTIONS (10)
  - Liver abscess [Unknown]
  - Drug withdrawal syndrome [Not Recovered/Not Resolved]
  - Infection [Recovered/Resolved]
  - White blood cell count increased [Recovered/Resolved]
  - Gallbladder disorder [Recovered/Resolved]
  - Abdominal pain [Recovered/Resolved]
  - Hyperhidrosis [Not Recovered/Not Resolved]
  - Pyrexia [Not Recovered/Not Resolved]
  - Vertigo [Not Recovered/Not Resolved]
  - Nausea [Not Recovered/Not Resolved]
